FAERS Safety Report 26083214 (Version 1)
Quarter: 2025Q4

REPORT INFORMATION
  Report Type: Spontaneous
  Country: JP (occurrence: JP)
  Receive Date: 20251124
  Receipt Date: 20251124
  Transmission Date: 20260118
  Serious: Yes (Other)
  Sender: BRISTOL-MYERS SQUIBB COMPANY
  Company Number: JP-ONO-2025JP021397

PATIENT
  Age: 52 Year
  Sex: Male

DRUGS (1)
  1. OPDIVO [Suspect]
     Active Substance: NIVOLUMAB
     Indication: Squamous cell carcinoma of skin
     Dosage: 480 MG
     Route: 041
     Dates: start: 20240912, end: 20250625

REACTIONS (3)
  - Immune-mediated hypothyroidism [Unknown]
  - Liver disorder [Unknown]
  - Immune-mediated renal disorder [Unknown]
